FAERS Safety Report 4701956-X (Version None)
Quarter: 2005Q2

REPORT INFORMATION
  Report Type: 
  Country: None (occurrence: None)
  Receive Date: 20050628
  Receipt Date: 20050119
  Transmission Date: 20051028
  Serious: Yes (Hospitalization, Other)
  Sender: FDA-Public Use
  Company Number: US-MERCK-0501USA04226

PATIENT
  Age: 56 Year
  Sex: Female
  Weight: 91 kg

DRUGS (7)
  1. VIOXX [Suspect]
     Indication: ABDOMINAL PAIN UPPER
     Route: 048
     Dates: start: 20020318, end: 20041001
  2. GLYBURIDE [Concomitant]
     Indication: DIABETES MELLITUS
     Route: 065
  3. METFORMIN [Concomitant]
     Route: 065
  4. LIPITOR [Concomitant]
     Indication: BLOOD CHOLESTEROL ABNORMAL
     Route: 065
  5. ALLOPURINOL [Concomitant]
     Indication: GOUT
     Route: 065
  6. ALLOPURINOL [Concomitant]
     Indication: BLOOD URIC ACID ABNORMAL
     Route: 065
  7. VIOXX [Suspect]
     Indication: ARTHRITIS
     Route: 048
     Dates: start: 20020318, end: 20041001

REACTIONS (7)
  - ABDOMINAL PAIN [None]
  - LACUNAR INFARCTION [None]
  - PATELLA FRACTURE [None]
  - POLYP COLORECTAL [None]
  - PULMONARY EMBOLISM [None]
  - THROMBOSIS [None]
  - TRANSIENT ISCHAEMIC ATTACK [None]
